FAERS Safety Report 5978491-4 (Version None)
Quarter: 2008Q4

REPORT INFORMATION
  Report Type: 
  Country: None (occurrence: None)
  Receive Date: 20081204
  Receipt Date: 20080828
  Transmission Date: 20090506
  Serious: No
  Sender: FDA-Public Use
  Company Number: US-BAYER-200713971BCC

PATIENT
  Age: 69 Year
  Sex: Male
  Weight: 74 kg

DRUGS (4)
  1. ALEVE (CAPLET) [Suspect]
     Indication: PAIN
     Dosage: UNIT DOSE: 220 MG
     Route: 048
     Dates: start: 20071201
  2. LEVAQUIN [Concomitant]
  3. IBUPROFEN TABLETS [Concomitant]
  4. BACTRIM [Concomitant]

REACTIONS (3)
  - GENERALISED ERYTHEMA [None]
  - RASH MACULAR [None]
  - SKIN SWELLING [None]
